FAERS Safety Report 21333319 (Version 1)
Quarter: 2022Q3

REPORT INFORMATION
  Report Type: Report from Study
  Country: IN (occurrence: IN)
  Receive Date: 20220914
  Receipt Date: 20220914
  Transmission Date: 20221026
  Serious: Yes (Hospitalization)
  Sender: FDA-Public Use
  Company Number: IN-GLAXOSMITHKLINE-IN2022APC130071

PATIENT

DRUGS (1)
  1. MEPOLIZUMAB [Suspect]
     Active Substance: MEPOLIZUMAB
     Indication: Asthma
     Dosage: 100 MG, Z: ONCE IN 4 WEEKS
     Route: 058

REACTIONS (1)
  - Nasal oedema [Unknown]

NARRATIVE: CASE EVENT DATE: 20220101
